FAERS Safety Report 25286366 (Version 1)
Quarter: 2025Q2

REPORT INFORMATION
  Report Type: Spontaneous
  Country: US (occurrence: US)
  Receive Date: 20250509
  Receipt Date: 20250509
  Transmission Date: 20250716
  Serious: No
  Sender: SANDOZ
  Company Number: US-SANDOZ-SDZ2025US028945

PATIENT
  Age: 6 Year
  Sex: Male

DRUGS (2)
  1. OMNITROPE [Suspect]
     Active Substance: SOMATROPIN
     Indication: Hypopituitarism
     Dosage: 0.5 MG, QD; 0.5 MG 2 DOSE EVERY N/A N/A
     Route: 058
  2. OMNITROPE [Suspect]
     Active Substance: SOMATROPIN
     Indication: Hypopituitarism
     Dosage: 0.5 MG, QD; 0.5 MG 2 DOSE EVERY N/A N/A
     Route: 058

REACTIONS (4)
  - Product dose omission issue [Unknown]
  - Liquid product physical issue [Unknown]
  - Device malfunction [Unknown]
  - Needle issue [Unknown]

NARRATIVE: CASE EVENT DATE: 20250429
